FAERS Safety Report 5262664-2 (Version None)
Quarter: 2007Q1

REPORT INFORMATION
  Report Type: 
  Country: None (occurrence: None)
  Receive Date: 20061218
  Receipt Date: 20060410
  Transmission Date: 20070707
  Serious: Yes (Hospitalization)
  Sender: FDA-Public Use
  Company Number: 2006002552

PATIENT
  Sex: Female

DRUGS (2)
  1. ARTHROTEC [Suspect]
     Indication: POSTOPERATIVE CARE
  2. ALL OTHER THERAPEUTIC PRODUCTS (ALOL OTHER THERAPEUTIC PRODUCTS) [Suspect]
     Indication: LUNG DISORDER

REACTIONS (3)
  - BLOOD PRESSURE INCREASED [None]
  - GAIT DISTURBANCE [None]
  - PYREXIA [None]
